FAERS Safety Report 8774388 (Version 1)
Quarter: 2012Q4

REPORT INFORMATION
  Report Type: 
  Country: SE (occurrence: US)
  Receive Date: 20120907
  Receipt Date: 20120907
  Transmission Date: 20130627
  Serious: Yes (Death, Other)
  Sender: FDA-Public Use
  Company Number: US-009507513-0202USA00726

PATIENT

DRUGS (6)
  1. PRINIVIL [Suspect]
     Indication: HYPERTENSION
     Route: 048
  2. BENADRYL [Concomitant]
  3. SYNTHROID [Concomitant]
  4. PREMARIN [Concomitant]
  5. PROZAC [Concomitant]
  6. FUROSEMIDE [Concomitant]

REACTIONS (2)
  - Angioedema [Fatal]
  - Asphyxia [Fatal]
